FAERS Safety Report 19214517 (Version 1)
Quarter: 2021Q2

REPORT INFORMATION
  Report Type: Spontaneous
  Country: US (occurrence: US)
  Receive Date: 20210504
  Receipt Date: 20210504
  Transmission Date: 20210717
  Serious: Yes (Other)
  Sender: FDA-Public Use
  Company Number: US-FRESENIUS KABI-FK202104507

PATIENT
  Age: 70 Year
  Sex: Male

DRUGS (3)
  1. PREDNISONE. [Suspect]
     Active Substance: PREDNISONE
     Indication: DEAFNESS NEUROSENSORY
     Route: 048
  2. PHENOL. [Concomitant]
     Active Substance: PHENOL
     Indication: DEAFNESS NEUROSENSORY
     Route: 061
  3. DEXAMETHASONE INJECTION (MANUFACTURER UNKNOWN) [Suspect]
     Active Substance: DEXAMETHASONE
     Indication: DEAFNESS NEUROSENSORY
     Route: 050

REACTIONS (1)
  - Osteonecrosis [Recovered/Resolved]
